FAERS Safety Report 7721358-1 (Version None)
Quarter: 2011Q3

REPORT INFORMATION
  Report Type: 
  Country: None (occurrence: None)
  Receive Date: 20110831
  Receipt Date: 20110823
  Transmission Date: 20111222
  Serious: Yes (Hospitalization)
  Sender: FDA-Public Use
  Company Number: JP-ROCHE-746879

PATIENT
  Sex: Female
  Weight: 45 kg

DRUGS (20)
  1. VANCOMYCIN [Suspect]
     Route: 065
  2. AVASTIN [Suspect]
     Dosage: FREQUENCY: 1/3 WEEKS
     Route: 042
     Dates: start: 20100927, end: 20101017
  3. AMLODIPINE [Suspect]
     Route: 048
  4. LEUCOVORIN CALCIUM [Concomitant]
     Route: 041
     Dates: start: 20100629, end: 20100902
  5. EFUDEX [Concomitant]
     Route: 040
     Dates: start: 20091029, end: 20100527
  6. EFUDEX [Concomitant]
     Route: 040
     Dates: start: 20100629, end: 20100902
  7. XELODA [Suspect]
     Indication: COLON CANCER
     Route: 048
     Dates: start: 20100927, end: 20101017
  8. TOPOTECAN [Concomitant]
     Dates: start: 20100629, end: 20100902
  9. AVASTIN [Suspect]
     Route: 042
     Dates: start: 20100629, end: 20100902
  10. EFUDEX [Concomitant]
     Route: 041
     Dates: start: 20091029, end: 20100501
  11. AVASTIN [Suspect]
     Indication: COLON CANCER METASTATIC
     Route: 042
     Dates: start: 20091029, end: 20100327
  12. BIFIDOBACTERIUM [Suspect]
     Route: 048
  13. OXALIPLATIN [Suspect]
     Indication: COLON CANCER METASTATIC
     Route: 041
     Dates: start: 20091029, end: 20100527
  14. OXALIPLATIN [Suspect]
     Dosage: FREQUENCY 1/3 WEEK
     Route: 041
     Dates: start: 20100927, end: 20101017
  15. AVASTIN [Suspect]
     Dosage: FREQUENCY: 1/3 WEEK
     Route: 042
     Dates: start: 20101018, end: 20101128
  16. XELODA [Suspect]
     Route: 048
     Dates: start: 20101018, end: 20101128
  17. OMEPRAZOLE [Suspect]
     Route: 065
  18. CLOSTRIDIUM BUTYRICUM [Suspect]
     Dosage: FORM: MINUTE GRAIN
     Route: 048
  19. CLARITHROMYCIN [Suspect]
     Route: 048
  20. EFUDEX [Concomitant]
     Route: 041
     Dates: start: 20100629, end: 20100901

REACTIONS (2)
  - PSEUDOMEMBRANOUS COLITIS [None]
  - URTICARIA [None]
